FAERS Safety Report 20185326 (Version 1)
Quarter: 2021Q4

REPORT INFORMATION
  Report Type: Report from Study
  Country: BR (occurrence: BR)
  Receive Date: 20211215
  Receipt Date: 20211215
  Transmission Date: 20220304
  Serious: Yes (Other)
  Sender: FDA-Public Use
  Company Number: BR-JNJFOC-20211222010

PATIENT
  Sex: Male
  Weight: 80 kg

DRUGS (1)
  1. INFLIXIMAB [Suspect]
     Active Substance: INFLIXIMAB
     Indication: Psoriatic arthropathy
     Dosage: 100 MG VIAL
     Route: 041
     Dates: start: 20140602

REACTIONS (5)
  - Hypersensitivity [Unknown]
  - Neoplasm [Unknown]
  - Memory impairment [Unknown]
  - Off label use [Unknown]
  - Inappropriate schedule of product administration [Unknown]
